FAERS Safety Report 8459522-9 (Version None)
Quarter: 2012Q2

REPORT INFORMATION
  Report Type: 
  Country: None (occurrence: None)
  Receive Date: 20120622
  Receipt Date: 20120614
  Transmission Date: 20120825
  Serious: Yes (Other)
  Sender: FDA-Public Use
  Company Number: SE-JNJFOC-20110605740

PATIENT
  Sex: Female
  Weight: 2.55 kg

DRUGS (1)
  1. REMICADE [Suspect]
     Indication: FOETAL EXPOSURE DURING PREGNANCY
     Route: 064

REACTIONS (2)
  - PREMATURE BABY [None]
  - MATERNAL DRUGS AFFECTING FOETUS [None]
